FAERS Safety Report 10550950 (Version 1)
Quarter: 2014Q4

REPORT INFORMATION
  Report Type: Spontaneous
  Country: GB (occurrence: GB)
  Receive Date: 20141029
  Receipt Date: 20141029
  Transmission Date: 20150529
  Serious: Yes (Other)
  Sender: FDA-Public Use
  Company Number: GB-009507513-1410GBR014024

PATIENT
  Age: 66 Year
  Sex: Male

DRUGS (1)
  1. EZETROL [Suspect]
     Active Substance: EZETIMIBE
     Indication: BLOOD CHOLESTEROL INCREASED
     Dosage: UNK
     Route: 048

REACTIONS (10)
  - Balance disorder [Unknown]
  - Psychiatric symptom [Unknown]
  - Self esteem decreased [Unknown]
  - Fatigue [Unknown]
  - Nausea [Unknown]
  - Social avoidant behaviour [Unknown]
  - Impaired work ability [Unknown]
  - Vomiting [Unknown]
  - Rash [Unknown]
  - Quality of life decreased [Unknown]
